FAERS Safety Report 6086156-6 (Version None)
Quarter: 2009Q1

REPORT INFORMATION
  Report Type: 
  Country: None (occurrence: None)
  Receive Date: 20090220
  Receipt Date: 20090213
  Transmission Date: 20090719
  Serious: Yes (Hospitalization, Disabling)
  Sender: FDA-Public Use
  Company Number: US-GENENTECH-249778

PATIENT
  Sex: Male

DRUGS (2)
  1. BEVACIZUMAB [Suspect]
     Indication: GLIOBLASTOMA MULTIFORME
  2. IRINOTECAN HCL [Suspect]
     Indication: GLIOBLASTOMA MULTIFORME

REACTIONS (1)
  - CONFUSIONAL STATE [None]
